FAERS Safety Report 5536426-2 (Version None)
Quarter: 2007Q4

REPORT INFORMATION
  Report Type: 
  Country: None (occurrence: None)
  Receive Date: 20071204
  Receipt Date: 20071123
  Transmission Date: 20080405
  Serious: Yes (Hospitalization)
  Sender: FDA-Public Use
  Company Number: GXKR2007DE10084

PATIENT
  Age: 21 Year
  Sex: Male

DRUGS (2)
  1. THEOPHYLLINE [Suspect]
     Indication: MEDICATION ERROR
     Dosage: 40 DF, ONCE/SINGLE, ORAL
     Route: 048
  2. ACETYLCYSTEINE [Concomitant]

REACTIONS (5)
  - DRUG TOXICITY [None]
  - HEPATIC ENZYME ABNORMAL [None]
  - INTENTIONAL OVERDOSE [None]
  - SUICIDE ATTEMPT [None]
  - TACHYCARDIA [None]
